FAERS Safety Report 11812850 (Version 8)
Quarter: 2017Q1

REPORT INFORMATION
  Report Type: Report from Study
  Country: CA (occurrence: CA)
  Receive Date: 20151209
  Receipt Date: 20170106
  Transmission Date: 20170428
  Serious: Yes (Other)
  Sender: FDA-Public Use
  Company Number: CA-ROCHE-1377756

PATIENT
  Age: 62 Year
  Sex: Female
  Weight: 83.6 kg

DRUGS (28)
  1. RITUXAN [Suspect]
     Active Substance: RITUXIMAB
     Indication: GRANULOMATOSIS WITH POLYANGIITIS
     Route: 042
     Dates: start: 20121122
  2. BENADRYL [Suspect]
     Active Substance: DIPHENHYDRAMINE HYDROCHLORIDE
     Indication: PREMEDICATION
  3. PREMARIN [Concomitant]
     Active Substance: ESTROGENS, CONJUGATED
  4. PAXIL (CANADA) [Concomitant]
  5. APO-RISEDRONATE [Concomitant]
     Active Substance: RISEDRONATE SODIUM
  6. RITUXAN [Suspect]
     Active Substance: RITUXIMAB
     Route: 042
     Dates: start: 20141204
  7. BENADRYL [Suspect]
     Active Substance: DIPHENHYDRAMINE HYDROCHLORIDE
     Indication: PREMEDICATION
     Route: 048
     Dates: start: 20121122
  8. PRAMIPEXOLE. [Concomitant]
     Active Substance: PRAMIPEXOLE
  9. DOMPERIDONE [Concomitant]
     Active Substance: DOMPERIDONE
  10. ORACORT [Suspect]
     Active Substance: TRIAMCINOLONE ACETONIDE
     Indication: PRODUCT USED FOR UNKNOWN INDICATION
     Route: 065
  11. RABEPRAZOLE [Concomitant]
     Active Substance: RABEPRAZOLE
  12. VITAMIN B12 [Concomitant]
     Active Substance: CYANOCOBALAMIN
  13. VITAMIN B6 [Concomitant]
     Active Substance: PYRIDOXINE HYDROCHLORIDE
  14. METHOTREXATE. [Concomitant]
     Active Substance: METHOTREXATE
  15. PREDNISONE. [Concomitant]
     Active Substance: PREDNISONE
     Route: 065
     Dates: end: 20130601
  16. RITUXAN [Suspect]
     Active Substance: RITUXIMAB
     Route: 042
     Dates: start: 20140917
  17. PLAQUENIL [Suspect]
     Active Substance: HYDROXYCHLOROQUINE SULFATE
     Indication: PRODUCT USED FOR UNKNOWN INDICATION
     Route: 065
  18. TYLENOL [Concomitant]
     Active Substance: ACETAMINOPHEN
     Indication: PREMEDICATION
     Route: 048
     Dates: start: 20121122
  19. RITUXAN [Suspect]
     Active Substance: RITUXIMAB
     Dosage: LAST DOSE OF RITUXIMAB: 04/JUN/2014
     Route: 042
     Dates: start: 20130604
  20. RITUXAN [Suspect]
     Active Substance: RITUXIMAB
     Route: 042
     Dates: start: 20150601
  21. ORACORT [Suspect]
     Active Substance: TRIAMCINOLONE ACETONIDE
     Route: 065
  22. SOLU-MEDROL [Concomitant]
     Active Substance: METHYLPREDNISOLONE SODIUM SUCCINATE
     Indication: PREMEDICATION
     Route: 042
     Dates: start: 20121122
  23. SYNTHROID [Concomitant]
     Active Substance: LEVOTHYROXINE SODIUM
  24. WARFARIN [Concomitant]
     Active Substance: WARFARIN
  25. OXYNEO [Concomitant]
     Active Substance: OXYCODONE
  26. CLONAZEPAM. [Concomitant]
     Active Substance: CLONAZEPAM
  27. LYRICA [Concomitant]
     Active Substance: PREGABALIN
  28. VITAMIN K [Concomitant]
     Active Substance: PHYTONADIONE

REACTIONS (20)
  - Weight increased [Unknown]
  - Weight decreased [Not Recovered/Not Resolved]
  - Haemoptysis [Unknown]
  - Infusion related reaction [Unknown]
  - Blood pressure increased [Unknown]
  - Spinal disorder [Not Recovered/Not Resolved]
  - Blood pressure fluctuation [Unknown]
  - Cataract [Not Recovered/Not Resolved]
  - Injection site pain [Unknown]
  - Heart rate decreased [Unknown]
  - Granulomatosis with polyangiitis [Unknown]
  - Sciatica [Not Recovered/Not Resolved]
  - Vein disorder [Unknown]
  - Sinusitis [Recovered/Resolved]
  - Somnolence [Unknown]
  - Epistaxis [Unknown]
  - Injection site extravasation [Unknown]
  - White blood cell count decreased [Recovered/Resolved]
  - Drug ineffective [Unknown]
  - Pain [Unknown]

NARRATIVE: CASE EVENT DATE: 20140604
